FAERS Safety Report 5844625-5 (Version None)
Quarter: 2008Q3

REPORT INFORMATION
  Report Type: 
  Country: None (occurrence: None)
  Receive Date: 20080812
  Receipt Date: 20080730
  Transmission Date: 20090109
  Serious: Yes (Hospitalization)
  Sender: FDA-Public Use
  Company Number: 2008001805

PATIENT
  Age: 64 Year
  Sex: Female

DRUGS (4)
  1. ERLOTINIB (ERLOTINIB) [Suspect]
     Indication: LUNG ADENOCARCINOMA
     Dosage: (150 MG, QD) , ORAL
     Route: 048
     Dates: start: 20080328
  2. GASTER D [Concomitant]
  3. TOCOPHEROL CONCENTRATE CAP [Concomitant]
  4. LEVOFLOXACIN [Concomitant]

REACTIONS (1)
  - HAEMOTHORAX [None]
